FAERS Safety Report 9161383 (Version 2)
Quarter: 2013Q3

REPORT INFORMATION
  Report Type: Spontaneous
  Country: US (occurrence: US)
  Receive Date: 20121227
  Receipt Date: 20130813
  Transmission Date: 20140515
  Serious: Yes (Hospitalization)
  Sender: FDA-Public Use
  Company Number: US-RB-048103-12

PATIENT
  Age: 45 Year
  Sex: Female

DRUGS (2)
  1. SUBOXONE FILM [Suspect]
     Indication: PAIN
     Dosage: SUBLINGUAL FILM
     Route: 060
     Dates: start: 201207
  2. NUCYNTA [Concomitant]
     Indication: PAIN
     Dosage: UNKNOWN DOSING DETAILS
     Route: 065
     Dates: start: 201212, end: 20121218

REACTIONS (3)
  - Breast mass [Recovered/Resolved]
  - Off label use [Not Recovered/Not Resolved]
  - Diarrhoea [Not Recovered/Not Resolved]
